FAERS Safety Report 4892381-X (Version None)
Quarter: 2006Q1

REPORT INFORMATION
  Report Type: 
  Country: None (occurrence: None)
  Receive Date: 20060126
  Receipt Date: 20050930
  Transmission Date: 20060701
  Serious: Yes (Hospitalization, Disabling)
  Sender: FDA-Public Use
  Company Number: US-MERCK-0510USA01889

PATIENT
  Age: 59 Year
  Sex: Male
  Weight: 91 kg

DRUGS (8)
  1. VIOXX [Suspect]
     Indication: SHOULDER PAIN
     Route: 048
     Dates: start: 20001229, end: 20010901
  2. FOLIC ACID [Concomitant]
     Route: 065
  3. LESCOL [Concomitant]
     Route: 065
  4. LOTENSIN [Concomitant]
     Route: 065
  5. PREVACID [Concomitant]
     Route: 065
  6. VANCENASE AQ NASAL SPRAY [Concomitant]
     Route: 065
  7. ZYRTEC [Concomitant]
     Route: 065
  8. PRAVACHOL [Concomitant]
     Route: 065

REACTIONS (3)
  - ARTHROPATHY [None]
  - CHEST PAIN [None]
  - MYOCARDIAL INFARCTION [None]
